FAERS Safety Report 13915572 (Version 1)
Quarter: 2017Q3

REPORT INFORMATION
  Report Type: Spontaneous
  Country: US (occurrence: US)
  Receive Date: 20170828
  Receipt Date: 20170828
  Transmission Date: 20171127
  Serious: No
  Sender: FDA-Public Use
  Company Number: None

PATIENT
  Age: 30 Year
  Sex: Male
  Weight: 69.75 kg

DRUGS (4)
  1. RHOFADE [Suspect]
     Active Substance: OXYMETAZOLINE HYDROCHLORIDE
     Indication: ERYTHEMA
     Route: 061
     Dates: start: 20170821, end: 20170825
  2. RHOFADE [Suspect]
     Active Substance: OXYMETAZOLINE HYDROCHLORIDE
     Indication: ROSACEA
     Route: 061
     Dates: start: 20170821, end: 20170825
  3. RANITIDINE. [Concomitant]
     Active Substance: RANITIDINE
  4. TYLENOL EXTRA STRENGTH [Concomitant]
     Active Substance: ACETAMINOPHEN

REACTIONS (3)
  - Acne [None]
  - Dry skin [None]
  - Rosacea [None]

NARRATIVE: CASE EVENT DATE: 20170826
